FAERS Safety Report 23577959 (Version 2)
Quarter: 2025Q1

REPORT INFORMATION
  Report Type: Spontaneous
  Country: US (occurrence: US)
  Receive Date: 20240228
  Receipt Date: 20250124
  Transmission Date: 20250409
  Serious: Yes (Death, Hospitalization)
  Sender: BIOGEN
  Company Number: US-BIOGEN-2024BI01252583

PATIENT
  Age: 70 Year
  Sex: Male

DRUGS (1)
  1. VUMERITY [Suspect]
     Active Substance: DIROXIMEL FUMARATE
     Indication: Multiple sclerosis
     Dosage: MAINTENANCE DOSE
     Route: 050
     Dates: start: 20201204, end: 20240222

REACTIONS (3)
  - Death [Fatal]
  - Gastric polyps [Unknown]
  - Vomiting [Unknown]

NARRATIVE: CASE EVENT DATE: 20240222
